FAERS Safety Report 4735332-0 (Version None)
Quarter: 2005Q3

REPORT INFORMATION
  Report Type: 
  Country: None (occurrence: None)
  Receive Date: 20050805
  Receipt Date: 20050126
  Transmission Date: 20060218
  Serious: Yes (Other)
  Sender: FDA-Public Use
  Company Number: US-ROCHE-393887

PATIENT
  Age: 48 Year
  Sex: Female
  Weight: 73.5 kg

DRUGS (4)
  1. PEGASYS [Suspect]
     Route: 058
     Dates: start: 20040806, end: 20050701
  2. COPEGUS [Suspect]
     Route: 048
     Dates: start: 20040806, end: 20050701
  3. AVAPRO [Concomitant]
     Indication: HYPERTENSION
     Route: 048
  4. PREMARIN [Concomitant]
     Indication: HORMONE REPLACEMENT THERAPY
     Route: 048

REACTIONS (28)
  - ANAEMIA [None]
  - ANOREXIA [None]
  - ANXIETY [None]
  - ARTHRALGIA [None]
  - CARPAL TUNNEL SYNDROME [None]
  - COLONIC POLYP [None]
  - CRYOGLOBULINAEMIA [None]
  - DIARRHOEA [None]
  - EMOTIONAL DISTRESS [None]
  - FATIGUE [None]
  - HAEMATEMESIS [None]
  - HEADACHE [None]
  - HYPERTENSION [None]
  - HYPOAESTHESIA [None]
  - LEUKOCYTOCLASTIC VASCULITIS [None]
  - NAUSEA [None]
  - NECK PAIN [None]
  - PAIN IN EXTREMITY [None]
  - RECTAL CANCER [None]
  - RECTAL HAEMORRHAGE [None]
  - RED BLOOD CELL COUNT DECREASED [None]
  - THERAPY NON-RESPONDER [None]
  - THYROID GLAND CANCER [None]
  - ULCER [None]
  - VASCULITIS [None]
  - VOMITING [None]
  - WEIGHT DECREASED [None]
  - WHITE BLOOD CELL COUNT DECREASED [None]
